FAERS Safety Report 7525890-5 (Version None)
Quarter: 2011Q2

REPORT INFORMATION
  Report Type: 
  Country: None (occurrence: None)
  Receive Date: 20110603
  Receipt Date: 20110603
  Transmission Date: 20111010
  Serious: Yes (Other)
  Sender: FDA-Public Use
  Company Number: None

PATIENT
  Sex: Male
  Weight: 30.6178 kg

DRUGS (1)
  1. ZONISAMIDE [Suspect]
     Dosage: ONE PO BID
     Route: 048
     Dates: start: 20081201, end: 20090101

REACTIONS (1)
  - CONVULSION [None]
